FAERS Safety Report 18146769 (Version 3)
Quarter: 2020Q4

REPORT INFORMATION
  Report Type: Report from Study
  Country: US (occurrence: US)
  Receive Date: 20200813
  Receipt Date: 20201217
  Transmission Date: 20210113
  Serious: Yes (Other)
  Sender: FDA-Public Use
  Company Number: US-TAKEDA-2020TUS018308

PATIENT
  Age: 34 Year
  Sex: Female

DRUGS (13)
  1. AZELAIC ACID. [Concomitant]
     Active Substance: AZELAIC ACID
     Indication: SKIN LESION
     Dosage: 15 PERCENT
     Route: 061
     Dates: start: 20190828
  2. CYANOCOBALAMIN. [Concomitant]
     Active Substance: CYANOCOBALAMIN
     Indication: CROHN^S DISEASE
     Dosage: UNK
     Dates: start: 20200317
  3. DAPSONE. [Concomitant]
     Active Substance: DAPSONE
     Dosage: 5 PERCENT
  4. FOLIC ACID. [Concomitant]
     Active Substance: FOLIC ACID
     Indication: CROHN^S DISEASE
     Dosage: 1 MILLIGRAM
     Route: 048
     Dates: start: 20200312
  5. NORETHINDRONE ACETATE AND ETHINYL ESTRADIOL [Concomitant]
     Active Substance: ETHINYL ESTRADIOL\NORETHINDRONE ACETATE
     Dosage: UNK
  6. CRANBERRY                          /01512301/ [Concomitant]
     Active Substance: CRANBERRY
     Dosage: UNK
  7. VEDOLIZUMAB [Suspect]
     Active Substance: VEDOLIZUMAB
     Indication: CROHN^S DISEASE
     Dosage: 300 MILLIGRAM
     Route: 042
     Dates: start: 20180223
  8. PROPANOLOL                         /00030001/ [Concomitant]
     Active Substance: PROPRANOLOL HYDROCHLORIDE
     Dosage: UNK
  9. BUDESONIDE. [Concomitant]
     Active Substance: BUDESONIDE
     Dosage: UNK
  10. CHOLECALCIFEROL [Concomitant]
     Active Substance: CHOLECALCIFEROL
     Indication: CROHN^S DISEASE
     Dosage: UNK
     Route: 048
     Dates: start: 20170608
  11. FLUTICASONE. [Concomitant]
     Active Substance: FLUTICASONE
     Dosage: UNK
  12. TRETINOIN. [Concomitant]
     Active Substance: TRETINOIN
     Dosage: UNK
  13. CLINDAMYCIN PHOSPHATE. [Concomitant]
     Active Substance: CLINDAMYCIN PHOSPHATE
     Indication: SKIN LESION
     Dosage: 1 PERCENT
     Route: 061
     Dates: start: 20191008

REACTIONS (3)
  - Melanocytic naevus [Not Recovered/Not Resolved]
  - Solar lentigo [Not Recovered/Not Resolved]
  - Basal cell carcinoma [Recovered/Resolved]

NARRATIVE: CASE EVENT DATE: 2019
